FAERS Safety Report 14556403 (Version 19)
Quarter: 2021Q2

REPORT INFORMATION
  Report Type: Report from Study
  Country: None (occurrence: JP)
  Receive Date: 20180221
  Receipt Date: 20210524
  Transmission Date: 20210716
  Serious: Yes (Hospitalization, Other)
  Sender: FDA-Public Use
  Company Number: JP-ABBVIE-17K-087-2199888-00

PATIENT
  Age: 83 Year
  Sex: Male
  Weight: 55 kg

DRUGS (17)
  1. DUODOPA [Suspect]
     Active Substance: CARBIDOPA\LEVODOPA
     Indication: PARKINSON^S DISEASE
     Dosage: MD: 11 ML CD: 1.6 ML/HRS X 18 HRS ED: 1 ML/UNIT X 2?LED: 770 MG/DAY
     Route: 050
     Dates: start: 20171220, end: 20171225
  2. DAIKENCHUTO [Concomitant]
     Active Substance: HERBALS
     Indication: ILL-DEFINED DISORDER
     Route: 048
  3. DOMPERIDONE [Concomitant]
     Active Substance: DOMPERIDONE
     Indication: ILL-DEFINED DISORDER
     Route: 048
  4. ROPINIROLE HYDROCHLORIDE. [Concomitant]
     Active Substance: ROPINIROLE HYDROCHLORIDE
     Indication: PARKINSON^S DISEASE
     Route: 048
     Dates: start: 20180507, end: 20181017
  5. DUODOPA [Suspect]
     Active Substance: CARBIDOPA\LEVODOPA
     Route: 050
     Dates: start: 20200121
  6. ENTACAPONE. [Concomitant]
     Active Substance: ENTACAPONE
     Indication: PARKINSON^S DISEASE
     Route: 048
     Dates: start: 20180507, end: 20181017
  7. SUVOREXANT. [Concomitant]
     Active Substance: SUVOREXANT
     Indication: ILL-DEFINED DISORDER
     Route: 048
  8. BICALUTAMIDE. [Concomitant]
     Active Substance: BICALUTAMIDE
     Indication: ILL-DEFINED DISORDER
     Route: 048
  9. BROTIZOLAM [Concomitant]
     Active Substance: BROTIZOLAM
     Indication: ILL-DEFINED DISORDER
     Route: 048
  10. MOSAPRIDE CITRATE [Concomitant]
     Active Substance: MOSAPRIDE CITRATE
     Indication: PRODUCT USED FOR UNKNOWN INDICATION
     Route: 048
  11. CARBIDOPA HYDRATE?LEVODOPA [Concomitant]
     Route: 048
     Dates: start: 20191123
  12. DUODOPA [Suspect]
     Active Substance: CARBIDOPA\LEVODOPA
     Dosage: MD: 11 ML CD: 1.8 ML/HR X 16 HRS ED: 1 ML/UNIT X 2
     Route: 050
     Dates: start: 20181018, end: 20191122
  13. MAGNESIUM OXIDE. [Concomitant]
     Active Substance: MAGNESIUM OXIDE
     Indication: ILL-DEFINED DISORDER
     Route: 048
  14. LUBIPROSTONE [Concomitant]
     Active Substance: LUBIPROSTONE
     Indication: ILL-DEFINED DISORDER
     Route: 048
  15. CARBIDOPA HYDRATE?LEVODOPA [Concomitant]
     Indication: PARKINSON^S DISEASE
     Route: 048
     Dates: start: 20191123
  16. DUODOPA [Suspect]
     Active Substance: CARBIDOPA\LEVODOPA
     Dosage: MD: 11 ML CD: 1.6 ML/HR X 16 HR ED: 1 ML/UNIT X 2
     Route: 050
     Dates: start: 20171226, end: 20180507
  17. YOKUKANSAN EXTRACT [Concomitant]
     Indication: ILL-DEFINED DISORDER
     Route: 048

REACTIONS (13)
  - Cardiac failure [Unknown]
  - Device dislocation [Unknown]
  - Fall [Recovered/Resolved]
  - Unintentional medical device removal [Unknown]
  - Device kink [Recovered/Resolved]
  - Device occlusion [Recovered/Resolved]
  - Movement disorder [Unknown]
  - Nyctalgia [Unknown]
  - Anxiety [Unknown]
  - Fall [Recovered/Resolved]
  - Radius fracture [Recovered/Resolved]
  - Femoral neck fracture [Recovering/Resolving]
  - Fall [Recovered/Resolved]

NARRATIVE: CASE EVENT DATE: 20180111
